FAERS Safety Report 13678939 (Version 4)
Quarter: 2018Q1

REPORT INFORMATION
  Report Type: Spontaneous
  Country: JP (occurrence: JP)
  Receive Date: 20170622
  Receipt Date: 20180227
  Transmission Date: 20180508
  Serious: Yes (Hospitalization)
  Sender: FDA-Public Use
  Company Number: JP-JNJFOC-20170614212

PATIENT
  Age: 55 Year
  Sex: Female
  Weight: 40 kg

DRUGS (11)
  1. FILGRASTIM [Concomitant]
     Active Substance: FILGRASTIM
     Route: 042
  2. BIOFERMIN [Concomitant]
     Active Substance: BACILLUS SUBTILIS\LACTOBACILLUS ACIDOPHILUS\STREPTOCOCCUS FAECAIS
     Route: 048
  3. DEXALTIN [Concomitant]
     Active Substance: DEXAMETHASONE
     Route: 049
  4. PARAPLATIN [Suspect]
     Active Substance: CARBOPLATIN
     Indication: OVARIAN CANCER
     Route: 042
     Dates: start: 20150812, end: 20151209
  5. BEVACIZUMAB. [Suspect]
     Active Substance: BEVACIZUMAB
     Indication: OVARIAN CANCER
     Route: 042
     Dates: start: 20160224, end: 20160901
  6. LOXONIN [Concomitant]
     Active Substance: LOXOPROFEN SODIUM
     Route: 048
  7. SODIUM GUALENATE HYDRATE [Concomitant]
     Active Substance: SODIUM GUALENATE MONOHYDRATE
     Route: 049
  8. DOXIL [Suspect]
     Active Substance: DOXORUBICIN HYDROCHLORIDE
     Indication: OVARIAN CANCER
     Route: 042
     Dates: start: 20160129, end: 20160901
  9. DOCETAXEL. [Suspect]
     Active Substance: DOCETAXEL
     Indication: OVARIAN CANCER
     Route: 041
     Dates: start: 20150812, end: 20151209
  10. STAYBLA [Concomitant]
     Active Substance: IMIDAFENACIN
     Route: 048
  11. LOXOPROFEN [Concomitant]
     Active Substance: LOXOPROFEN
     Route: 048

REACTIONS (2)
  - Pyelonephritis [Recovered/Resolved]
  - Pneumocystis jirovecii pneumonia [Recovered/Resolved]

NARRATIVE: CASE EVENT DATE: 20160512
